FAERS Safety Report 24325265 (Version 2)
Quarter: 2024Q4

REPORT INFORMATION
  Report Type: Spontaneous
  Country: US (occurrence: US)
  Receive Date: 20240916
  Receipt Date: 20241016
  Transmission Date: 20250115
  Serious: No
  Sender: ROCHE
  Company Number: US-ROCHE-10000081539

PATIENT
  Sex: Female

DRUGS (1)
  1. ESBRIET [Suspect]
     Active Substance: PIRFENIDONE
     Indication: Idiopathic pulmonary fibrosis
     Route: 048
     Dates: start: 201808

REACTIONS (2)
  - Cough [Unknown]
  - Weight decreased [Unknown]
